FAERS Safety Report 9482544 (Version 1)
Quarter: 2013Q3

REPORT INFORMATION
  Report Type: Spontaneous
  Country: US (occurrence: US)
  Receive Date: 20130828
  Receipt Date: 20130828
  Transmission Date: 20140515
  Serious: No
  Sender: FDA-Public Use
  Company Number: US-SANOFI-AVENTIS-2012SA071931

PATIENT
  Age: 73 Year
  Sex: Male
  Weight: 78 kg

DRUGS (16)
  1. ELIGARD [Suspect]
     Route: 058
     Dates: start: 20100322, end: 20100322
  2. ELIGARD [Suspect]
     Route: 058
     Dates: start: 201009, end: 201009
  3. ELIGARD [Suspect]
     Route: 058
     Dates: start: 20120924, end: 20120924
  4. ELIGARD [Suspect]
     Route: 058
     Dates: start: 201103, end: 201103
  5. ELIGARD [Suspect]
     Route: 058
     Dates: start: 201109, end: 201109
  6. ELIGARD [Suspect]
     Route: 058
     Dates: start: 20120628, end: 20120628
  7. MIRTAZAPINE [Concomitant]
     Route: 048
     Dates: start: 20111220
  8. ASPIRIN [Concomitant]
     Route: 048
     Dates: start: 20111220
  9. MULTIVITAMINS [Concomitant]
     Route: 048
     Dates: start: 20111220
  10. VITAMIN D [Concomitant]
     Dosage: DOSE:1000 UNIT(S)
     Route: 048
     Dates: start: 20111220
  11. ZINC [Concomitant]
     Route: 048
     Dates: start: 20111220
  12. SELENIUM [Concomitant]
     Route: 048
     Dates: start: 20111220
  13. TYLENOL [Concomitant]
     Dates: start: 20111220
  14. VITAMIN E [Concomitant]
     Route: 048
     Dates: start: 20111220
  15. PLAVIX [Concomitant]
     Route: 048
     Dates: start: 20111220
  16. GABAPENTIN [Concomitant]
     Route: 048
     Dates: start: 20120328

REACTIONS (3)
  - Hot flush [Recovered/Resolved]
  - Injection site mass [Recovered/Resolved]
  - Blood testosterone increased [Unknown]
